FAERS Safety Report 5853278-1 (Version None)
Quarter: 2008Q3

REPORT INFORMATION
  Report Type: 
  Country: None (occurrence: None)
  Receive Date: 20080821
  Receipt Date: 20080814
  Transmission Date: 20090109
  Serious: Yes (Hospitalization, Other)
  Sender: FDA-Public Use
  Company Number: US-AMGEN-KDL221821

PATIENT
  Sex: Female

DRUGS (1)
  1. ENBREL [Suspect]
     Indication: RHEUMATOID ARTHRITIS
     Route: 058
     Dates: start: 20011201

REACTIONS (5)
  - DYSPNOEA [None]
  - INFLAMMATION [None]
  - PULMONARY GRANULOMA [None]
  - RHEUMATOID NODULE [None]
  - SARCOIDOSIS [None]
